FAERS Safety Report 7711991-5 (Version None)
Quarter: 2011Q3

REPORT INFORMATION
  Report Type: 
  Country: None (occurrence: None)
  Receive Date: 20110823
  Receipt Date: 20110809
  Transmission Date: 20111222
  Serious: Yes (Other)
  Sender: FDA-Public Use
  Company Number: 2011SP038450

PATIENT
  Age: 1 Day
  Sex: Male
  Weight: 2.95 kg

DRUGS (2)
  1. REBETOL [Suspect]
     Indication: PREGNANCY
     Dosage: TRPL
     Route: 064
  2. PEG-INTERFERON [Suspect]
     Indication: PREGNANCY
     Dosage: TRPL
     Route: 064

REACTIONS (4)
  - RESPIRATORY DISORDER NEONATAL [None]
  - CYANOSIS NEONATAL [None]
  - STREPTOCOCCUS TEST POSITIVE [None]
  - MATERNAL DRUGS AFFECTING FOETUS [None]
